FAERS Safety Report 9524851 (Version 1)
Quarter: 2013Q1

REPORT INFORMATION
  Report Type: Spontaneous
  Country: US (occurrence: None)
  Receive Date: 20130305
  Receipt Date: 20130305
  Transmission Date: 20140127
  Serious: Yes (Other)
  Sender: FDA-Public Use
  Company Number: 163-21880-12033417

PATIENT
  Age: 59 Year
  Sex: Female

DRUGS (6)
  1. REVLIMID (LENALIDOMIDE) (15 MILLIGRAM, CAPSULES) [Suspect]
     Indication: PLASMA CELL MYELOMA
     Route: 048
     Dates: start: 20120302
  2. AZITHROMYCIN [Concomitant]
  3. ASPIRIN (ACETYLSALICYLIC ACID) [Concomitant]
  4. PREDNISONE [Concomitant]
  5. TRAMADOL [Concomitant]
  6. RANITIDINE [Concomitant]

REACTIONS (1)
  - Anaemia [None]
